FAERS Safety Report 7668280-7 (Version None)
Quarter: 2011Q3

REPORT INFORMATION
  Report Type: 
  Country: None (occurrence: None)
  Receive Date: 20110808
  Receipt Date: 20110729
  Transmission Date: 20111222
  Serious: Yes (Death)
  Sender: FDA-Public Use
  Company Number: JP-UCBSA-038105

PATIENT
  Sex: Male
  Weight: 56 kg

DRUGS (13)
  1. PREDNISOLONE [Concomitant]
     Route: 045
     Dates: start: 20110531, end: 20110607
  2. BETAMETHASONE [Concomitant]
     Route: 045
     Dates: start: 20110403, end: 20110509
  3. LANSOPRAZOLE [Concomitant]
     Route: 045
     Dates: start: 20110405, end: 20110607
  4. MUCOSIL-10 [Concomitant]
     Route: 045
     Dates: start: 20110407, end: 20110530
  5. MUCODYNE [Concomitant]
     Route: 045
     Dates: start: 20110418, end: 20110530
  6. CEFAZOLIN SODIUM [Concomitant]
     Route: 045
     Dates: start: 20110417, end: 20110530
  7. KEPPRA [Suspect]
     Indication: SIMPLE PARTIAL SEIZURES
     Route: 048
     Dates: start: 20110324, end: 20110607
  8. DEPAKENE [Concomitant]
     Indication: SIMPLE PARTIAL SEIZURES
     Route: 045
     Dates: start: 20110403, end: 20110607
  9. BETAMETHASONE [Concomitant]
     Route: 048
     Dates: start: 20110322, end: 20110402
  10. MAGMITT [Concomitant]
     Route: 045
     Dates: start: 20110406, end: 20110530
  11. LIVACT [Concomitant]
     Route: 045
     Dates: start: 20110426, end: 20110530
  12. PREDNISOLONE [Concomitant]
     Route: 045
     Dates: start: 20110422, end: 20110523
  13. PREDNISOLONE [Concomitant]
     Route: 045
     Dates: start: 20110524, end: 20110530

REACTIONS (1)
  - DEATH [None]
